FAERS Safety Report 23467721 (Version 1)
Quarter: 2024Q1

REPORT INFORMATION
  Report Type: Spontaneous
  Country: CA (occurrence: CA)
  Receive Date: 20240201
  Receipt Date: 20240201
  Transmission Date: 20240410
  Serious: Yes (Other)
  Sender: FDA-Public Use
  Company Number: CA-FreseniusKabi-FK202401725

PATIENT
  Age: 45 Year
  Sex: Female

DRUGS (4)
  1. FOLIC ACID [Suspect]
     Active Substance: FOLIC ACID
     Indication: Product used for unknown indication
     Dosage: FORM OF ADMINISTRATION: NOT SPECIFIED
     Route: 065
  2. HYDROXYCHLOROQUINE SULFATE [Suspect]
     Active Substance: HYDROXYCHLOROQUINE SULFATE
     Indication: Product used for unknown indication
     Route: 065
  3. METHOTREXATE [Suspect]
     Active Substance: METHOTREXATE
     Indication: Product used for unknown indication
     Route: 065
  4. XELJANZ XR [Suspect]
     Active Substance: TOFACITINIB CITRATE
     Indication: Rheumatoid arthritis
     Dosage: FOA: TABLET (EXTENDED-RELEASE)
     Route: 048

REACTIONS (7)
  - Depression [Unknown]
  - COVID-19 [Unknown]
  - Erysipelas [Unknown]
  - Exposure to SARS-CoV-2 [Unknown]
  - Fatigue [Unknown]
  - Flatulence [Unknown]
  - Malaise [Unknown]
